FAERS Safety Report 10655065 (Version 1)
Quarter: 2014Q4

REPORT INFORMATION
  Report Type: Spontaneous
  Country: GB (occurrence: None)
  Receive Date: 20141212
  Receipt Date: 20141212
  Transmission Date: 20150529
  Serious: Yes (Hospitalization, Other)
  Sender: FDA-Public Use
  Company Number: 2014RR-89842

PATIENT
  Age: 44 Year
  Sex: Female

DRUGS (11)
  1. LEVOTHYROXINE (LEVOTHYROXINE) [Concomitant]
     Active Substance: LEVOTHYROXINE
  2. PARACETAMOL (PARACETAMOL) [Concomitant]
     Active Substance: ACETAMINOPHEN
  3. SODIUM DOCUSATE (SODIUM DOCUSATE) [Concomitant]
  4. LANSOPRAZOLE (LANSOPRAZOLE) [Concomitant]
     Active Substance: LANSOPRAZOLE
  5. METOCLOPRAMIDE (METOCLOPRAMIDE) [Concomitant]
     Active Substance: METOCLOPRAMIDE
  6. CODEINE [Suspect]
     Active Substance: CODEINE
     Indication: PAIN
  7. CARBAMAZEPINE (CARBAMAZEPINE) [Concomitant]
     Active Substance: CARBAMAZEPINE
  8. OXYCODONE (OXYCODONE) [Suspect]
     Active Substance: OXYCODONE
     Indication: PAIN
  9. MOVICOL (MACROGOL) [Concomitant]
  10. OXYCODONE [Suspect]
     Active Substance: OXYCODONE
  11. LEVETIRACETAM (LEVETIRACETAM) [Concomitant]
     Active Substance: LEVETIRACETAM

REACTIONS (2)
  - Memory impairment [None]
  - Hyperaesthesia [None]
